FAERS Safety Report 22172587 (Version 3)
Quarter: 2023Q4

REPORT INFORMATION
  Report Type: Spontaneous
  Country: US (occurrence: US)
  Receive Date: 20230404
  Receipt Date: 20231219
  Transmission Date: 20240109
  Serious: Yes (Hospitalization, Other)
  Sender: FDA-Public Use
  Company Number: US-PFIZER INC-202300141757

PATIENT
  Age: 67 Year
  Sex: Male
  Weight: 113.4 kg

DRUGS (1)
  1. VYNDAMAX [Suspect]
     Active Substance: TAFAMIDIS
     Dosage: 61 MG, 1X/DAY (ONE CAPSULE EVERY NIGHT, BY MOUTH)
     Route: 048

REACTIONS (2)
  - Cerebrovascular accident [Unknown]
  - Speech disorder [Unknown]

NARRATIVE: CASE EVENT DATE: 20221003
